FAERS Safety Report 6073142-5 (Version None)
Quarter: 2009Q1

REPORT INFORMATION
  Report Type: 
  Country: None (occurrence: None)
  Receive Date: 20090211
  Receipt Date: 20090203
  Transmission Date: 20090719
  Serious: Yes (Hospitalization)
  Sender: FDA-Public Use
  Company Number: US-ALLERGAN-0901301US

PATIENT
  Sex: Female

DRUGS (1)
  1. BOTOX COSMETIC [Suspect]
     Indication: MUSCLE SPASMS
     Dosage: 25 UNITS, SINGLE
     Route: 030
     Dates: start: 20080403, end: 20080403

REACTIONS (4)
  - DISORIENTATION [None]
  - HYPOAESTHESIA [None]
  - LETHARGY [None]
  - PERONEAL NERVE PALSY [None]
